FAERS Safety Report 4767922-3 (Version None)
Quarter: 2005Q3

REPORT INFORMATION
  Report Type: 
  Country: None (occurrence: None)
  Receive Date: 20050913
  Receipt Date: 20050311
  Transmission Date: 20060218
  Serious: Yes (Hospitalization)
  Sender: FDA-Public Use
  Company Number: US-MERCK-0503USA02728

PATIENT
  Age: 61 Year
  Sex: Male
  Weight: 105 kg

DRUGS (4)
  1. TYLENOL [Concomitant]
     Indication: HEADACHE
     Route: 065
  2. TYLENOL [Concomitant]
     Indication: MYALGIA
     Route: 065
  3. VIOXX [Suspect]
     Indication: ARTHRITIS
     Route: 048
     Dates: start: 20000128, end: 20011026
  4. ACETAMINOPHEN [Concomitant]
     Route: 065

REACTIONS (6)
  - GASTROOESOPHAGEAL REFLUX DISEASE [None]
  - HAEMATOCHEZIA [None]
  - LIMB INJURY [None]
  - PULMONARY EMBOLISM [None]
  - STOMACH DISCOMFORT [None]
  - THROMBOSIS [None]
